FAERS Safety Report 8602155 (Version 3)
Quarter: 2012Q4

REPORT INFORMATION
  Report Type: 
  Country: US (occurrence: US)
  Receive Date: 20120607
  Receipt Date: 20120903
  Transmission Date: 20130627
  Serious: No
  Sender: FDA-Public Use
  Company Number: US-PFIZER INC-2012132571

PATIENT
  Age: 55 Year
  Sex: Female
  Weight: 95.24 kg

DRUGS (8)
  1. CHANTIX [Suspect]
     Indication: SMOKING CESSATION THERAPY
     Dosage: UNK
     Route: 048
  2. CHANTIX [Suspect]
     Dosage: 0.5 mg, UNK
     Route: 048
  3. CHANTIX [Suspect]
     Dosage: UNK
     Route: 048
     Dates: start: 2012
  4. FLEXERIL [Concomitant]
     Indication: FIBROMYALGIA
     Dosage: 10 mg, daily at bed time
  5. LEXAPRO [Concomitant]
     Indication: DEPRESSION
     Dosage: 40 mg, daily
  6. AMBIEN [Concomitant]
     Indication: SLEEP DISORDER
     Dosage: 10 mg, daily at night
  7. XANAX [Concomitant]
     Indication: NERVOUS SYSTEM DISORDER
     Dosage: 10 mg, as needed at bed time
  8. REGLAN [Concomitant]
     Indication: DEPRESSION
     Dosage: 40 mg, daily

REACTIONS (2)
  - Constipation [Unknown]
  - Amnesia [Recovered/Resolved]
